FAERS Safety Report 5941418-5 (Version None)
Quarter: 2008Q4

REPORT INFORMATION
  Report Type: 
  Country: None (occurrence: None)
  Receive Date: 20081031
  Receipt Date: 20081020
  Transmission Date: 20090506
  Serious: Yes (Hospitalization, Other)
  Sender: FDA-Public Use
  Company Number: 2008BI009081

PATIENT
  Age: 28 Year
  Sex: Female
  Weight: 77.1115 kg

DRUGS (8)
  1. TYSABRI [Suspect]
     Indication: MULTIPLE SCLEROSIS
     Dosage: 300 MG;QM;IV
     Route: 042
     Dates: start: 20071107, end: 20080227
  2. HEPARIN [Concomitant]
  3. EMPRACET [Concomitant]
  4. SERAX [Concomitant]
  5. NEXIUM [Concomitant]
  6. IMOVANE [Concomitant]
  7. SOLU-MEDROL [Concomitant]
  8. NAPROSYN [Concomitant]

REACTIONS (19)
  - ABDOMINAL PAIN UPPER [None]
  - ALANINE AMINOTRANSFERASE INCREASED [None]
  - BLOOD ALBUMIN DECREASED [None]
  - BLOOD URINE PRESENT [None]
  - DEEP VEIN THROMBOSIS [None]
  - DEMYELINATING POLYNEUROPATHY [None]
  - DRUG HYPERSENSITIVITY [None]
  - ENTEROCOCCAL INFECTION [None]
  - GUILLAIN-BARRE SYNDROME [None]
  - IMMUNOGLOBULINS INCREASED [None]
  - LOSS OF CONSCIOUSNESS [None]
  - MULTIPLE SCLEROSIS RELAPSE [None]
  - PINEAL GLAND CYST [None]
  - PITUITARY CYST [None]
  - QUADRIPARESIS [None]
  - SINUS DISORDER [None]
  - SKIN HYPERPIGMENTATION [None]
  - STEVENS-JOHNSON SYNDROME [None]
  - THROMBOPHLEBITIS [None]
